FAERS Safety Report 24792682 (Version 1)
Quarter: 2024Q4

REPORT INFORMATION
  Report Type: Spontaneous
  Country: US (occurrence: US)
  Receive Date: 20241231
  Receipt Date: 20241231
  Transmission Date: 20250115
  Serious: No
  Sender: TEVA
  Company Number: US-TEVA-VS-3275175

PATIENT
  Age: 64 Year
  Sex: Female

DRUGS (1)
  1. AUSTEDO [Suspect]
     Active Substance: DEUTETRABENAZINE
     Indication: Huntington^s disease
     Dosage: DAILY DOSE: 12 MG
     Route: 048

REACTIONS (2)
  - Hypoacusis [Unknown]
  - Hearing aid user [Unknown]
